FAERS Safety Report 10347322 (Version 3)
Quarter: 2014Q3

REPORT INFORMATION
  Report Type: Spontaneous
  Country: US (occurrence: US)
  Receive Date: 20140729
  Receipt Date: 20140912
  Transmission Date: 20150326
  Serious: Yes (Other)
  Sender: FDA-Public Use
  Company Number: US-PFIZER INC-2014208354

PATIENT
  Age: 42 Year
  Sex: Female
  Weight: 56.24 kg

DRUGS (2)
  1. DILANTIN [Suspect]
     Active Substance: PHENYTOIN
     Dosage: UNK (2X DAY TO 4X DAY IN THE PAST)
  2. DILANTIN [Suspect]
     Active Substance: PHENYTOIN
     Indication: CONVULSION
     Dosage: 100 MG, 3X/DAY
     Route: 048
     Dates: start: 2008

REACTIONS (2)
  - Convulsion [Unknown]
  - Anticonvulsant drug level decreased [Unknown]
